FAERS Safety Report 7400157-4 (Version None)
Quarter: 2011Q2

REPORT INFORMATION
  Report Type: 
  Country: None (occurrence: None)
  Receive Date: 20110405
  Receipt Date: 20110405
  Transmission Date: 20111010
  Serious: Yes (Other)
  Sender: FDA-Public Use
  Company Number: None

PATIENT
  Age: 49 Year
  Sex: Female
  Weight: 77.5651 kg

DRUGS (2)
  1. FENTANYL [Suspect]
     Indication: INTERVERTEBRAL DISC PROTRUSION
     Dosage: 75 MCG Q 72 HR TOP
     Route: 061
     Dates: start: 20110101, end: 20110331
  2. FENTANYL [Suspect]
     Indication: BACK PAIN
     Dosage: 75 MCG Q 72 HR TOP
     Route: 061
     Dates: start: 20110101, end: 20110331

REACTIONS (3)
  - PRODUCT SUBSTITUTION ISSUE [None]
  - APPLICATION SITE RASH [None]
  - DRUG EFFECT DECREASED [None]
